FAERS Safety Report 21635635 (Version 1)
Quarter: 2022Q4

REPORT INFORMATION
  Report Type: Spontaneous
  Country: US (occurrence: US)
  Receive Date: 20221123
  Receipt Date: 20221123
  Transmission Date: 20230113
  Serious: No
  Sender: FDA-Public Use
  Company Number: US-GLAXOSMITHKLINE-USCH2022045681

PATIENT
  Sex: Female

DRUGS (1)
  1. ADVIL [Suspect]
     Active Substance: IBUPROFEN
     Indication: Procedural pain
     Dosage: 200 MG (8 TABLETES IN A DAY)
     Dates: start: 20221117, end: 20221121

REACTIONS (3)
  - Rash [Unknown]
  - Swelling face [Unknown]
  - Off label use [Unknown]
